FAERS Safety Report 9277127 (Version 3)
Quarter: 2013Q2

REPORT INFORMATION
  Report Type: Spontaneous
  Country: IT (occurrence: IT)
  Receive Date: 20130507
  Receipt Date: 20130523
  Transmission Date: 20140414
  Serious: Yes (Hospitalization, Other)
  Sender: FDA-Public Use
  Company Number: IT-BRISTOL-MYERS SQUIBB COMPANY-18848572

PATIENT
  Age: 80 Year
  Sex: Male

DRUGS (8)
  1. COUMADIN TABS 5 MG [Suspect]
     Indication: ATRIAL FIBRILLATION
     Dosage: 1 DF : 1 UNITS NOS.
     Route: 048
     Dates: start: 20120106
  2. CARDIOASPIRIN [Suspect]
     Indication: ISCHAEMIC STROKE
     Dosage: CARDIOASPIRIN TEMPORARY SUSPENSION.?GRADUAL STOP TO LOW MOLECULAR WEIGHT HEPARIN.?NASAL SWAB.
     Route: 048
     Dates: start: 20120125, end: 20120203
  3. CLEXANE [Suspect]
     Indication: ATRIAL FIBRILLATION
     Dosage: 6000 IU AXA/0.6ML SOLUTION FOR INJECTION.?1 DF : 2 UNITS NOS.
     Route: 058
     Dates: start: 20120106, end: 20120202
  4. NEXIUM [Concomitant]
  5. NITROSORBIDE [Concomitant]
  6. VOLTAREN [Concomitant]
     Dosage: 100 MG SUPPOSITORY.?1 DF : 1 UNITS NOS.
     Route: 054
     Dates: start: 20120126, end: 20120130
  7. TAVANIC [Concomitant]
     Dosage: 100 ML SOLUTION FOR INFUSION.?1 DF : 1 UNIT NOS.
     Route: 042
     Dates: start: 20120125, end: 20120204
  8. CONGESCOR [Concomitant]
     Dates: start: 2012

REACTIONS (3)
  - Ischaemic stroke [Unknown]
  - Epistaxis [Recovered/Resolved]
  - Haematoma [Unknown]
